FAERS Safety Report 18845116 (Version 1)
Quarter: 2021Q1

REPORT INFORMATION
  Report Type: Spontaneous
  Country: US (occurrence: US)
  Receive Date: 20210203
  Receipt Date: 20210203
  Transmission Date: 20210419
  Serious: Yes (Hospitalization)
  Sender: FDA-Public Use
  Company Number: None

PATIENT
  Age: 9 Year
  Sex: Male

DRUGS (2)
  1. NORDITROPIN [Suspect]
     Active Substance: SOMATROPIN
     Indication: HYPOPITUITARISM
     Route: 058
     Dates: start: 20200825
  2. CLOBAZAM. [Concomitant]
     Active Substance: CLOBAZAM

REACTIONS (3)
  - Sinus disorder [None]
  - Cough [None]
  - Seizure [None]

NARRATIVE: CASE EVENT DATE: 20210102
